FAERS Safety Report 4335052-0 (Version None)
Quarter: 2004Q2

REPORT INFORMATION
  Report Type: 
  Country: None (occurrence: None)
  Receive Date: 20040408
  Receipt Date: 20040329
  Transmission Date: 20050107
  Serious: Yes (Other)
  Sender: FDA-Public Use
  Company Number: GB-GLAXOSMITHKLINE-B0328401A

PATIENT
  Age: 79 Year
  Sex: Male
  Weight: 65 kg

DRUGS (4)
  1. AVODART [Suspect]
     Indication: PROSTATISM
     Dosage: 500MCG PER DAY
     Route: 048
     Dates: start: 20031001, end: 20040301
  2. ALLOPURINOL [Concomitant]
     Indication: GOUT
     Dosage: 300MG PER DAY
     Route: 048
     Dates: start: 19900201
  3. IBUPROFEN [Concomitant]
     Indication: GOUT
     Dosage: 400MG PER DAY
     Route: 048
     Dates: start: 20040301
  4. GAVISCON [Concomitant]
     Indication: DYSPEPSIA
     Route: 048
     Dates: start: 20031201

REACTIONS (1)
  - ERYTHEMA MULTIFORME [None]
